FAERS Safety Report 13430617 (Version 2)
Quarter: 2017Q3

REPORT INFORMATION
  Report Type: Spontaneous
  Country: US (occurrence: US)
  Receive Date: 20170412
  Receipt Date: 20170731
  Transmission Date: 20171127
  Serious: Yes (Other)
  Sender: FDA-Public Use
  Company Number: US-SUN PHARMACEUTICAL INDUSTRIES LTD-2017US-138046

PATIENT
  Age: 15 Year
  Sex: Female

DRUGS (1)
  1. CLONIDINE. [Suspect]
     Active Substance: CLONIDINE
     Indication: INSOMNIA
     Dosage: 3 TABLETS
     Route: 048

REACTIONS (3)
  - Atrioventricular block [Unknown]
  - Intentional overdose [Unknown]
  - Somnolence [Unknown]
